FAERS Safety Report 11218127 (Version 2)
Quarter: 2015Q3

REPORT INFORMATION
  Report Type: Spontaneous
  Country: US (occurrence: US)
  Receive Date: 20150625
  Receipt Date: 20150701
  Transmission Date: 20151125
  Serious: No
  Sender: FDA-Public Use
  Company Number: US-BIOGENIDEC-2015BI072321

PATIENT
  Sex: Female

DRUGS (9)
  1. TECFIDERA [Suspect]
     Active Substance: DIMETHYL FUMARATE
     Indication: PRODUCT USED FOR UNKNOWN INDICATION
     Route: 048
  2. CALCIUM [Concomitant]
     Active Substance: CALCIUM
  3. LOVASTATIN. [Concomitant]
     Active Substance: LOVASTATIN
  4. VITAMIN D [Concomitant]
     Active Substance: CHOLECALCIFEROL
  5. ASPIRIN. [Concomitant]
     Active Substance: ASPIRIN
  6. VITAMIN B12 [Concomitant]
     Active Substance: CYANOCOBALAMIN
  7. OMEPRAZOLE. [Concomitant]
     Active Substance: OMEPRAZOLE
  8. AMPYRA [Concomitant]
     Active Substance: DALFAMPRIDINE
     Indication: MULTIPLE SCLEROSIS
     Route: 048
  9. LOSARTAN. [Concomitant]
     Active Substance: LOSARTAN

REACTIONS (7)
  - Anhedonia [Unknown]
  - Pruritus [Not Recovered/Not Resolved]
  - Flushing [Not Recovered/Not Resolved]
  - Abdominal pain upper [Unknown]
  - Diarrhoea [Unknown]
  - Decreased interest [Unknown]
  - Gastrointestinal disorder [Unknown]

NARRATIVE: CASE EVENT DATE: 2013
